FAERS Safety Report 8139625-9 (Version None)
Quarter: 2012Q1

REPORT INFORMATION
  Report Type: 
  Country: None (occurrence: None)
  Receive Date: 20120215
  Receipt Date: 20120208
  Transmission Date: 20120608
  Serious: Yes (Other)
  Sender: FDA-Public Use
  Company Number: PHHY2012FR012055

PATIENT
  Sex: Male

DRUGS (3)
  1. MYCOPHENOLATE MOFETIL (CELLCEPT) [Concomitant]
  2. NEORAL [Suspect]
     Indication: HEART TRANSPLANT
     Dosage: 280 MG, UNK
  3. SANDIMMUNE [Suspect]
     Indication: HEART TRANSPLANT
     Dosage: 280 MG, UNK

REACTIONS (1)
  - RENAL FAILURE [None]
